FAERS Safety Report 5415115-9 (Version None)
Quarter: 2007Q3

REPORT INFORMATION
  Report Type: 
  Country: None (occurrence: None)
  Receive Date: 20070815
  Receipt Date: 20070608
  Transmission Date: 20080115
  Serious: No
  Sender: FDA-Public Use
  Company Number: A0655163A

PATIENT
  Age: 78 Year
  Sex: Female

DRUGS (8)
  1. COREG CR [Suspect]
     Indication: DRUG USE FOR UNKNOWN INDICATION
     Dosage: 20MG PER DAY
     Route: 048
     Dates: start: 20070501
  2. COUMADIN [Concomitant]
  3. LANOXIN [Concomitant]
  4. ACTOS [Concomitant]
  5. ALTACE [Concomitant]
  6. TRICOR [Concomitant]
  7. ACTONEL [Concomitant]
  8. NOVOLIN 70/30 [Concomitant]

REACTIONS (7)
  - DIZZINESS [None]
  - DYSPNOEA [None]
  - FATIGUE [None]
  - HYPERHIDROSIS [None]
  - OEDEMA [None]
  - PAIN IN EXTREMITY [None]
  - PRURITUS [None]
